FAERS Safety Report 14695244 (Version 11)
Quarter: 2019Q2

REPORT INFORMATION
  Report Type: Spontaneous
  Country: US (occurrence: US)
  Receive Date: 20180329
  Receipt Date: 20190425
  Transmission Date: 20190711
  Serious: Yes (Hospitalization)
  Sender: FDA-Public Use
  Company Number: US-ACTELION-A-NJ2018-169798

PATIENT
  Age: 58 Year
  Sex: Female
  Weight: 108.39 kg

DRUGS (17)
  1. NEUROTIN [Concomitant]
     Active Substance: GABAPENTIN
  2. ALDACTONE [Concomitant]
     Active Substance: SPIRONOLACTONE
  3. ADCIRCA [Concomitant]
     Active Substance: TADALAFIL
  4. DIGOXIN. [Concomitant]
     Active Substance: DIGOXIN
  5. NEXIUM [Concomitant]
     Active Substance: ESOMEPRAZOLE MAGNESIUM
  6. LASIX [Concomitant]
     Active Substance: FUROSEMIDE
  7. OPSUMIT [Suspect]
     Active Substance: MACITENTAN
     Indication: PULMONARY ARTERIAL HYPERTENSION
     Dosage: 10 MG, QD
     Route: 048
  8. LANOXIN [Concomitant]
     Active Substance: DIGOXIN
  9. NORCO [Concomitant]
     Active Substance: ACETAMINOPHEN\HYDROCODONE BITARTRATE
  10. UPTRAVI [Suspect]
     Active Substance: SELEXIPAG
     Dosage: UNK
     Route: 048
     Dates: start: 20160806
  11. FLONASE [Concomitant]
     Active Substance: FLUTICASONE PROPIONATE
  12. K-DUR [Concomitant]
     Active Substance: POTASSIUM CHLORIDE
  13. UPTRAVI [Suspect]
     Active Substance: SELEXIPAG
     Indication: PULMONARY ARTERIAL HYPERTENSION
     Dosage: 1200 MCG, BID
     Route: 048
     Dates: start: 20160806
  14. LETAIRIS [Concomitant]
     Active Substance: AMBRISENTAN
  15. AMLODIPINE [Concomitant]
     Active Substance: AMLODIPINE BESYLATE
  16. NORVASC [Concomitant]
     Active Substance: AMLODIPINE BESYLATE
  17. ZAROXOLYN [Concomitant]
     Active Substance: METOLAZONE

REACTIONS (14)
  - Malaise [Unknown]
  - Bronchitis [Unknown]
  - Dyspnoea [Recovered/Resolved]
  - Chronic obstructive pulmonary disease [Recovered/Resolved]
  - Amnesia [Unknown]
  - Feeling abnormal [Unknown]
  - Swelling face [Unknown]
  - Parotitis [Unknown]
  - Retching [Unknown]
  - Nausea [Unknown]
  - Gastrooesophageal reflux disease [Unknown]
  - Pneumonia [Recovered/Resolved]
  - Urinary tract infection [Unknown]
  - Pulmonary arterial hypertension [Recovered/Resolved]

NARRATIVE: CASE EVENT DATE: 201803
